FAERS Safety Report 25697509 (Version 1)
Quarter: 2025Q3

REPORT INFORMATION
  Report Type: Spontaneous
  Country: CN (occurrence: CN)
  Receive Date: 20250818
  Receipt Date: 20250818
  Transmission Date: 20251021
  Serious: Yes (Hospitalization)
  Sender: NOVO NORDISK
  Company Number: CN-NOVOPROD-1499353

PATIENT
  Sex: Male

DRUGS (2)
  1. INSULIN ASPART [Suspect]
     Active Substance: INSULIN ASPART
     Indication: Product used for unknown indication
     Dosage: 30 IU, BID (20U IN THE MORNING AND 10U AT NIGHT)
  2. ACARBOSE [Concomitant]
     Active Substance: ACARBOSE
     Route: 048

REACTIONS (2)
  - Antiangiogenic therapy [Unknown]
  - Presbyopia [Unknown]
